FAERS Safety Report 11926960 (Version 1)
Quarter: 2016Q1

REPORT INFORMATION
  Report Type: Spontaneous
  Country: US (occurrence: None)
  Receive Date: 20160115
  Receipt Date: 20160115
  Transmission Date: 20160526
  Serious: No
  Sender: FDA-Public Use
  Company Number: None

PATIENT
  Age: 44 Year
  Sex: Female
  Weight: 81.19 kg

DRUGS (5)
  1. LATUDA [Suspect]
     Active Substance: LURASIDONE HYDROCHLORIDE
     Indication: BIPOLAR DISORDER
     Dosage: AFTER DINNER, TAKEN BY MOUTH
  2. ASPIRIN. [Concomitant]
     Active Substance: ASPIRIN
  3. IBUPROFEN. [Concomitant]
     Active Substance: IBUPROFEN
  4. PAXIL [Concomitant]
     Active Substance: PAROXETINE HYDROCHLORIDE
  5. LATUDA [Suspect]
     Active Substance: LURASIDONE HYDROCHLORIDE
     Indication: DEPRESSION
     Dosage: AFTER DINNER, TAKEN BY MOUTH

REACTIONS (6)
  - Dysphemia [None]
  - Speech disorder [None]
  - Drooling [None]
  - Tremor [None]
  - Eye movement disorder [None]
  - Muscle twitching [None]

NARRATIVE: CASE EVENT DATE: 20151228
